FAERS Safety Report 6071552-3 (Version None)
Quarter: 2009Q1

REPORT INFORMATION
  Report Type: 
  Country: None (occurrence: None)
  Receive Date: 20090210
  Receipt Date: 20090202
  Transmission Date: 20090719
  Serious: Yes (Other)
  Sender: FDA-Public Use
  Company Number: FR-TEVA-182896ISR

PATIENT
  Sex: Female

DRUGS (3)
  1. COPAXONE [Suspect]
     Indication: MULTIPLE SCLEROSIS
     Route: 058
     Dates: start: 20080901, end: 20081216
  2. ERGOCALCIFEROL [Concomitant]
     Route: 048
  3. PREGABALIN [Concomitant]
     Route: 048

REACTIONS (6)
  - CHEST PAIN [None]
  - FLUSHING [None]
  - INJECTION SITE OEDEMA [None]
  - PAIN IN EXTREMITY [None]
  - PARALYSIS [None]
  - SENSE OF OPPRESSION [None]
